FAERS Safety Report 21675158 (Version 2)
Quarter: 2023Q2

REPORT INFORMATION
  Report Type: Report from Study
  Country: US (occurrence: US)
  Receive Date: 20221202
  Receipt Date: 20230411
  Transmission Date: 20230721
  Serious: No
  Sender: FDA-Public Use
  Company Number: US-BIOVITRUM-2022US13830

PATIENT
  Age: 35 Year
  Sex: Female

DRUGS (3)
  1. KINERET [Suspect]
     Active Substance: ANAKINRA
     Indication: Still^s disease
     Dosage: FREQUENCY: DAILY
     Route: 058
     Dates: start: 20210122
  2. KINERET [Suspect]
     Active Substance: ANAKINRA
     Indication: Rheumatoid arthritis
     Dosage: FREQUENCY :DAILY
     Route: 058
     Dates: start: 20210122
  3. KINERET [Suspect]
     Active Substance: ANAKINRA
     Dosage: FREQUENCY :DAILY
     Route: 058
     Dates: start: 20210122

REACTIONS (6)
  - Intentional product misuse [Not Recovered/Not Resolved]
  - Product dose omission issue [Unknown]
  - Nasopharyngitis [Unknown]
  - Injection site reaction [Unknown]
  - Incorrect route of product administration [Unknown]
  - Illness [Unknown]

NARRATIVE: CASE EVENT DATE: 20210122
